FAERS Safety Report 21048723 (Version 1)
Quarter: 2022Q3

REPORT INFORMATION
  Report Type: Spontaneous
  Country: US (occurrence: None)
  Receive Date: 20220706
  Receipt Date: 20220706
  Transmission Date: 20221027
  Serious: No
  Sender: FDA-Public Use
  Company Number: None

PATIENT
  Age: 77 Year
  Sex: Female

DRUGS (1)
  1. RINVOQ [Suspect]
     Active Substance: UPADACITINIB
     Indication: Intervertebral disc disorder
     Dosage: FREQUENCY : DAILY;?
     Route: 048
     Dates: start: 202109

REACTIONS (1)
  - Pneumonia [None]
